FAERS Safety Report 10487703 (Version 1)
Quarter: 2014Q4

REPORT INFORMATION
  Report Type: Spontaneous
  Country: US (occurrence: US)
  Receive Date: 20141001
  Receipt Date: 20141001
  Transmission Date: 20150528
  Serious: No
  Sender: FDA-Public Use
  Company Number: US-BAYER-2014-146148

PATIENT
  Age: 19 Year
  Sex: Male
  Weight: 58.96 kg

DRUGS (2)
  1. GAS-X [Concomitant]
     Active Substance: DIMETHICONE
     Dosage: UNK
  2. ALEVE [Suspect]
     Active Substance: NAPROXEN SODIUM
     Indication: ABDOMINAL DISTENSION
     Dosage: 2 DF, PRN
     Route: 048
     Dates: start: 2011

REACTIONS (2)
  - Vomiting [Recovered/Resolved]
  - Intentional product misuse [Unknown]

NARRATIVE: CASE EVENT DATE: 20140929
